FAERS Safety Report 9309162 (Version 1)
Quarter: 2013Q2

REPORT INFORMATION
  Report Type: Spontaneous
  Country: US (occurrence: US)
  Receive Date: 20130525
  Receipt Date: 20130525
  Transmission Date: 20140414
  Serious: No
  Sender: FDA-Public Use
  Company Number: US-BRISTOL-MYERS SQUIBB COMPANY-18697482

PATIENT
  Age: 65 Year
  Sex: Female

DRUGS (6)
  1. BYDUREON [Suspect]
     Indication: TYPE 2 DIABETES MELLITUS
     Route: 058
     Dates: start: 201212
  2. ALLOPURINOL [Concomitant]
     Indication: GOUT
     Route: 048
  3. COREG [Concomitant]
     Indication: CARDIAC FAILURE
     Route: 048
  4. TRICOR [Concomitant]
     Indication: CARDIAC FAILURE
     Route: 048
  5. ADVAIR [Concomitant]
     Route: 048
  6. GLIMEPIRIDE [Concomitant]
     Indication: TYPE 2 DIABETES MELLITUS
     Route: 048

REACTIONS (1)
  - Underdose [Not Recovered/Not Resolved]
